FAERS Safety Report 6462737-2 (Version None)
Quarter: 2009Q4

REPORT INFORMATION
  Report Type: 
  Country: None (occurrence: None)
  Receive Date: 20091130
  Receipt Date: 20091118
  Transmission Date: 20100525
  Serious: Yes (Hospitalization)
  Sender: FDA-Public Use
  Company Number: ES-SANOFI-AVENTIS-2009SA003274

PATIENT
  Age: 81 Year
  Sex: Female

DRUGS (3)
  1. FUROSEMIDE [Suspect]
     Indication: HYPERTENSION
     Dates: start: 20090630, end: 20090709
  2. DILTIAZEM [Suspect]
     Indication: HYPERTENSION
     Dates: start: 20090630, end: 20090709
  3. LISINOPRIL [Suspect]
     Indication: HYPERTENSION
     Dates: start: 20090630, end: 20090709

REACTIONS (1)
  - ANGIOEDEMA [None]
